FAERS Safety Report 24572528 (Version 1)
Quarter: 2024Q4

REPORT INFORMATION
  Report Type: Spontaneous
  Country: US (occurrence: US)
  Receive Date: 20241101
  Receipt Date: 20241101
  Transmission Date: 20250115
  Serious: Yes (Other)
  Sender: TORRENT PHARMA INC.
  Company Number: US-TORRENT-00013818

PATIENT
  Age: 52 Year
  Sex: Male

DRUGS (1)
  1. DICHLORPHENAMIDE [Suspect]
     Active Substance: DICHLORPHENAMIDE
     Indication: Paralysis
     Dosage: UNKNOWN
     Route: 065

REACTIONS (3)
  - Nephrolithiasis [Recovering/Resolving]
  - Gout [Recovering/Resolving]
  - Renal impairment [Recovering/Resolving]
